FAERS Safety Report 6219184-8 (Version None)
Quarter: 2009Q2

REPORT INFORMATION
  Report Type: 
  Country: None (occurrence: None)
  Receive Date: 20090609
  Receipt Date: 20090528
  Transmission Date: 20091009
  Serious: Yes (Hospitalization)
  Sender: FDA-Public Use
  Company Number: BE-PFIZER INC-2004086609

PATIENT
  Age: 64 Year

DRUGS (13)
  1. SILDENAFIL CITRATE [Suspect]
     Indication: PULMONARY HYPERTENSION
     Route: 048
     Dates: start: 20040122
  2. DUOVENT [Concomitant]
     Route: 055
  3. SERETIDE [Concomitant]
     Route: 055
  4. RANITIDINE [Concomitant]
     Route: 065
  5. LORAMET [Concomitant]
     Route: 048
  6. L-THYROXIN [Concomitant]
     Route: 048
  7. FENOFIBRATE [Concomitant]
     Route: 065
     Dates: end: 20041029
  8. BUMEX [Concomitant]
     Route: 048
  9. MARCUMAR [Concomitant]
     Route: 048
  10. CORDARONE [Concomitant]
     Route: 048
  11. OXYGEN [Concomitant]
     Route: 065
  12. CAPTOPRIL [Concomitant]
     Route: 065
  13. FLOLAN [Concomitant]
     Dosage: UNK
     Route: 042
     Dates: start: 20000401

REACTIONS (3)
  - ABDOMINAL PAIN [None]
  - DIARRHOEA [None]
  - PANCREATITIS ACUTE [None]
